FAERS Safety Report 6687850-6 (Version None)
Quarter: 2010Q2

REPORT INFORMATION
  Report Type: 
  Country: None (occurrence: None)
  Receive Date: 20100409
  Receipt Date: 20090701
  Transmission Date: 20101027
  Serious: Yes (Hospitalization)
  Sender: FDA-Public Use
  Company Number: AE  2009-079

PATIENT
  Age: 56 Year
  Sex: Male

DRUGS (8)
  1. FAZACLO ODT [Suspect]
     Indication: PSYCHOTIC DISORDER
     Dosage: 100 MG DAILY PO
     Route: 048
     Dates: start: 20090625, end: 20090629
  2. DEPAKOTE [Concomitant]
  3. CELEXA [Concomitant]
  4. ULTRAM [Concomitant]
  5. HALDOL [Concomitant]
  6. HALDOL PRN [Concomitant]
  7. ATIVAN PRN [Concomitant]
  8. MOTRIN [Concomitant]

REACTIONS (2)
  - CONVULSION [None]
  - MUSCULOSKELETAL PAIN [None]
